FAERS Safety Report 5525332-5 (Version None)
Quarter: 2007Q4

REPORT INFORMATION
  Report Type: 
  Country: None (occurrence: None)
  Receive Date: 20071120
  Receipt Date: 20071120
  Transmission Date: 20080405
  Serious: Yes (Hospitalization)
  Sender: FDA-Public Use
  Company Number: None

PATIENT
  Age: 70 Year
  Sex: Female
  Weight: 63.1 kg

DRUGS (2)
  1. CARBOPLATIN [Suspect]
     Dosage: 597 MG
     Dates: start: 20071105, end: 20071105
  2. TAXOL [Suspect]
     Dosage: 280 MG
     Dates: end: 20071105

REACTIONS (5)
  - ABDOMINAL PAIN [None]
  - CONSTIPATION [None]
  - HYPONATRAEMIA [None]
  - NAUSEA [None]
  - VOMITING [None]
